FAERS Safety Report 4286841-2 (Version None)
Quarter: 2004Q1

REPORT INFORMATION
  Report Type: 
  Country: None (occurrence: None)
  Receive Date: 20040206
  Receipt Date: 20040126
  Transmission Date: 20041129
  Serious: Yes (Other)
  Sender: FDA-Public Use
  Company Number: PHNU2004DE00682

PATIENT
  Age: 52 Year
  Sex: Female

DRUGS (1)
  1. ESTRATEST [Suspect]
     Indication: MENOPAUSAL SYMPTOMS
     Route: 062
     Dates: start: 20030801

REACTIONS (1)
  - PLATELET COUNT ABNORMAL [None]
